FAERS Safety Report 7527297-3 (Version None)
Quarter: 2011Q2

REPORT INFORMATION
  Report Type: 
  Country: None (occurrence: None)
  Receive Date: 20110603
  Receipt Date: 20110603
  Transmission Date: 20111010
  Serious: Yes (Hospitalization)
  Sender: FDA-Public Use
  Company Number: None

PATIENT
  Age: 66 Year
  Sex: Male

DRUGS (1)
  1. MINNTECH RENASOL ACID CONCENTRATE CA2.5 K2.0 CODE SB-1077 MINNTECH [Suspect]
     Indication: RENAL FAILURE CHRONIC
     Dosage: CA0.0 KA2.0 ACID CONCENTRATE ONCE HEMODIALYSIS 010
     Dates: start: 20110525

REACTIONS (4)
  - HYPOAESTHESIA [None]
  - WRONG TECHNIQUE IN DRUG USAGE PROCESS [None]
  - HYPOAESTHESIA FACIAL [None]
  - PRODUCT LABEL ISSUE [None]
